FAERS Safety Report 7095175-2 (Version None)
Quarter: 2010Q4

REPORT INFORMATION
  Report Type: 
  Country: None (occurrence: None)
  Receive Date: 20101111
  Receipt Date: 20101018
  Transmission Date: 20110411
  Serious: Yes (Disabling, Other)
  Sender: FDA-Public Use
  Company Number: CA-BAYER-201035947NA

PATIENT
  Age: 88 Year
  Sex: Female

DRUGS (8)
  1. ADALAT CC [Suspect]
     Indication: HYPERTENSION
     Dosage: 1 X 30 MG AND 1 X 60 MG
     Route: 048
  2. ATENOLOL [Concomitant]
     Indication: HYPERTENSION
     Route: 065
  3. QUETIAPINE [Concomitant]
     Indication: INSOMNIA
     Route: 065
  4. SERTRALINE HYDROCHLORIDE [Concomitant]
     Indication: DEPRESSION
     Route: 065
  5. NITRAZEPAM [Concomitant]
     Indication: INSOMNIA
     Route: 065
  6. GLIPIZIDE [Concomitant]
     Indication: TYPE 2 DIABETES MELLITUS
     Route: 065
  7. TAPAZOLE [Concomitant]
     Indication: HYPOTHYROIDISM
     Route: 065
  8. PALAFER [Concomitant]
     Indication: ANAEMIA
     Route: 065

REACTIONS (1)
  - CEREBROVASCULAR ACCIDENT [None]
